FAERS Safety Report 5593013-8 (Version None)
Quarter: 2008Q1

REPORT INFORMATION
  Report Type: 
  Country: None (occurrence: None)
  Receive Date: 20080116
  Receipt Date: 20080103
  Transmission Date: 20080703
  Serious: Yes (Hospitalization, Other)
  Sender: FDA-Public Use
  Company Number: US-ELI_LILLY_AND_COMPANY-US200712003262

PATIENT
  Sex: Female

DRUGS (2)
  1. FORTEO [Suspect]
     Indication: OSTEOPOROSIS
     Dosage: UNK, UNK
     Dates: end: 20070501
  2. FORTEO [Suspect]
     Dosage: UNK, UNK
     Dates: start: 20070101

REACTIONS (7)
  - FALL [None]
  - HOSPITALISATION [None]
  - MUSCULOSKELETAL PAIN [None]
  - PAIN [None]
  - ROAD TRAFFIC ACCIDENT [None]
  - WEIGHT DECREASED [None]
  - WRIST FRACTURE [None]
